FAERS Safety Report 5153950-5 (Version None)
Quarter: 2006Q4

REPORT INFORMATION
  Report Type: 
  Country: None (occurrence: None)
  Receive Date: 20061120
  Receipt Date: 20061012
  Transmission Date: 20070319
  Serious: Yes (Hospitalization)
  Sender: FDA-Public Use
  Company Number: ZA-ROCHE-467042

PATIENT
  Age: 15 Year
  Sex: Male
  Weight: 95 kg

DRUGS (1)
  1. ROACCUTANE [Suspect]
     Route: 048
     Dates: start: 20060301, end: 20060905

REACTIONS (4)
  - GASTROENTERITIS [None]
  - INSULIN RESISTANCE [None]
  - MYOPERICARDITIS [None]
  - OBESITY [None]
